FAERS Safety Report 4425085-8 (Version None)
Quarter: 2004Q3

REPORT INFORMATION
  Report Type: 
  Country: None (occurrence: None)
  Receive Date: 20040813
  Receipt Date: 20040803
  Transmission Date: 20050211
  Serious: Yes (Hospitalization, Other)
  Sender: FDA-Public Use
  Company Number: EMADSS2003003136

PATIENT
  Sex: Female
  Weight: 46.9 kg

DRUGS (2)
  1. TOPAMAX [Suspect]
     Indication: EPILEPSY
     Route: 049
     Dates: start: 20030206, end: 20030216
  2. TRAMADOL HCL [Suspect]

REACTIONS (3)
  - BILE DUCT STONE [None]
  - GAMMA-GLUTAMYLTRANSFERASE INCREASED [None]
  - PANCREATITIS ACUTE [None]
